FAERS Safety Report 4500290-0 (Version None)
Quarter: 2004Q4

REPORT INFORMATION
  Report Type: 
  Country: None (occurrence: None)
  Receive Date: 20041109
  Receipt Date: 20041025
  Transmission Date: 20050328
  Serious: Yes (Death)
  Sender: FDA-Public Use
  Company Number: A-US2004-07501

PATIENT
  Age: 64 Year
  Sex: Male

DRUGS (11)
  1. TRACLEER [Suspect]
     Indication: PULMONARY HYPERTENSION
     Dosage: 62.5 MG, BID, ORAL
     Route: 048
     Dates: start: 20040801, end: 20040908
  2. TOPROL-XL [Concomitant]
  3. PLAVIX [Concomitant]
  4. COUMADIN [Concomitant]
  5. DEMADEX [Concomitant]
  6. IMDUR [Concomitant]
  7. HUMULIN 80/20 (INSULIN HUMAN, INSULIN HUMAN INJECTION, ISOPHANE) [Concomitant]
  8. ALBUTEROL [Concomitant]
  9. ATROVENT [Concomitant]
  10. CAPTOPRIL [Concomitant]
  11. PROTONIX [Concomitant]

REACTIONS (2)
  - ARRHYTHMIA [None]
  - CARDIAC ARREST [None]
